FAERS Safety Report 6271152-6 (Version None)
Quarter: 2009Q3

REPORT INFORMATION
  Report Type: 
  Country: None (occurrence: None)
  Receive Date: 20090717
  Receipt Date: 20070607
  Transmission Date: 20100115
  Serious: Yes (Death, Hospitalization, Other)
  Sender: FDA-Public Use
  Company Number: US-ASTRAZENECA-2006UW07752

PATIENT
  Age: 48 Year
  Sex: Male
  Weight: 81.8 kg

DRUGS (48)
  1. SEROQUEL [Suspect]
     Indication: DEPRESSION
     Dosage: 25-400 MG
     Route: 048
     Dates: start: 20020402
  2. SEROQUEL [Suspect]
     Indication: NERVOUSNESS
     Dosage: 25-400 MG
     Route: 048
     Dates: start: 20020402
  3. SEROQUEL [Suspect]
     Indication: ANXIETY
     Dosage: 25-400 MG
     Route: 048
     Dates: start: 20020402
  4. SEROQUEL [Suspect]
     Indication: INSOMNIA
     Dosage: 25-400 MG
     Route: 048
     Dates: start: 20020402
  5. SEROQUEL [Suspect]
     Route: 048
     Dates: start: 20020712, end: 20050709
  6. SEROQUEL [Suspect]
     Route: 048
     Dates: start: 20020712, end: 20050709
  7. SEROQUEL [Suspect]
     Route: 048
     Dates: start: 20020712, end: 20050709
  8. SEROQUEL [Suspect]
     Route: 048
     Dates: start: 20020712, end: 20050709
  9. LORTAB [Concomitant]
  10. PAXIL [Concomitant]
  11. VALIUM [Concomitant]
  12. DEMROL [Concomitant]
  13. TENORMIN [Concomitant]
  14. SOMA [Concomitant]
  15. PERI-COLACE [Concomitant]
  16. KEFLEX [Concomitant]
  17. LANTUS [Concomitant]
  18. NOVOLOG INSULINE [Concomitant]
  19. PROTONIX [Concomitant]
  20. POTASSIUM CHLORIDE [Concomitant]
  21. AMBIEN [Concomitant]
  22. FLOMAX [Concomitant]
  23. LOPID [Concomitant]
  24. VASOTEC [Concomitant]
  25. DURAGESIC-100 [Concomitant]
  26. PEPCID [Concomitant]
  27. URECHOLINE [Concomitant]
  28. DESYREL [Concomitant]
  29. EFFEXOR [Concomitant]
  30. DILAUDID [Concomitant]
  31. COUMADIN [Concomitant]
  32. LOPRESSOR [Concomitant]
  33. XANAX [Concomitant]
  34. AVANDIA [Concomitant]
  35. PREVACID [Concomitant]
  36. ISORDIL [Concomitant]
  37. TRAVATAN [Concomitant]
  38. TIMOPTIC [Concomitant]
  39. LANOXIN [Concomitant]
  40. DROPERIDOL [Concomitant]
  41. TYLOX [Concomitant]
  42. MS CONTIN [Concomitant]
  43. CELEBREX [Concomitant]
  44. AVANDAMET [Concomitant]
  45. BENADRYL [Concomitant]
  46. RANITIDINE [Concomitant]
  47. HYDROCORTISONE [Concomitant]
  48. OXYTOCIN [Concomitant]

REACTIONS (6)
  - CARDIAC DISORDER [None]
  - CIRCULATORY COLLAPSE [None]
  - DEATH [None]
  - DIABETES MELLITUS [None]
  - SICK SINUS SYNDROME [None]
  - TYPE 2 DIABETES MELLITUS [None]
